FAERS Safety Report 20069945 (Version 1)
Quarter: 2021Q4

REPORT INFORMATION
  Report Type: Spontaneous
  Country: KR (occurrence: None)
  Receive Date: 20211115
  Receipt Date: 20211115
  Transmission Date: 20220303
  Serious: Yes (Death)
  Sender: FDA-Public Use
  Company Number: 2021A804710

PATIENT
  Age: 59 Year
  Sex: Female

DRUGS (8)
  1. TAGRISSO [Suspect]
     Active Substance: OSIMERTINIB
     Dosage: 80MG / 14TAB
     Route: 048
     Dates: start: 20200916
  2. TAGRISSO [Suspect]
     Active Substance: OSIMERTINIB
     Dosage: 80MG / 20TAB
     Route: 048
     Dates: start: 20200928
  3. TAGRISSO [Suspect]
     Active Substance: OSIMERTINIB
     Dosage: 80MG / 21TAB
     Route: 048
     Dates: start: 20201028
  4. TAGRISSO [Suspect]
     Active Substance: OSIMERTINIB
     Dosage: 80MG /43TAB
     Route: 048
     Dates: start: 20210118
  5. TAGRISSO [Suspect]
     Active Substance: OSIMERTINIB
     Dosage: 80MG /43TAB
     Route: 048
     Dates: start: 20210203
  6. TAGRISSO [Suspect]
     Active Substance: OSIMERTINIB
     Dosage: 80MG /65TAB
     Route: 048
     Dates: start: 20210302
  7. TAGRISSO [Suspect]
     Active Substance: OSIMERTINIB
     Dosage: 80MG /80TAB
     Route: 048
     Dates: start: 20210504
  8. TAGRISSO [Suspect]
     Active Substance: OSIMERTINIB
     Dosage: 80MG /80TAB
     Route: 048
     Dates: start: 20210728

REACTIONS (3)
  - Septic shock [Fatal]
  - Pneumonia [Fatal]
  - Lung neoplasm malignant [Fatal]

NARRATIVE: CASE EVENT DATE: 20210815
